FAERS Safety Report 13738161 (Version 1)
Quarter: 2017Q3

REPORT INFORMATION
  Report Type: Spontaneous
  Country: AU (occurrence: AU)
  Receive Date: 20170710
  Receipt Date: 20170710
  Transmission Date: 20171127
  Serious: Yes (Other)
  Sender: FDA-Public Use
  Company Number: AU-PFIZER INC-2017296506

PATIENT
  Sex: Female

DRUGS (1)
  1. PRISTIQ EXTENDED-RELEASE [Suspect]
     Active Substance: DESVENLAFAXINE SUCCINATE
     Dosage: UNK

REACTIONS (13)
  - Anxiety [Unknown]
  - Ear pain [Unknown]
  - General physical health deterioration [Unknown]
  - Nightmare [Unknown]
  - Hyperhidrosis [Unknown]
  - Suicidal ideation [Unknown]
  - Paralysis [Unknown]
  - Abdominal pain [Unknown]
  - Head discomfort [Unknown]
  - Insomnia [Unknown]
  - Arthralgia [Unknown]
  - Withdrawal syndrome [Unknown]
  - Vomiting [Unknown]
